FAERS Safety Report 9719234 (Version 2)
Quarter: 2014Q2

REPORT INFORMATION
  Report Type: Spontaneous
  Country: AT (occurrence: AT)
  Receive Date: 20131127
  Receipt Date: 20140612
  Transmission Date: 20141212
  Serious: Yes (Hospitalization)
  Sender: FDA-Public Use
  Company Number: PHHY2013AT135063

PATIENT
  Sex: Female

DRUGS (1)
  1. GILENYA [Suspect]
     Indication: MULTIPLE SCLEROSIS

REACTIONS (6)
  - Pain [Unknown]
  - Movement disorder [Unknown]
  - Bladder disorder [Unknown]
  - Infection [Unknown]
  - Inflammation [Unknown]
  - Visual impairment [Unknown]
